FAERS Safety Report 5571421-9 (Version None)
Quarter: 2007Q4

REPORT INFORMATION
  Report Type: 
  Country: None (occurrence: None)
  Receive Date: 20071221
  Receipt Date: 20071212
  Transmission Date: 20080405
  Serious: No
  Sender: FDA-Public Use
  Company Number: A0691536A

PATIENT
  Age: 68 Year
  Sex: Female
  Weight: 54.5 kg

DRUGS (3)
  1. FLUTICASONE PROPIONATE [Suspect]
     Indication: SINUS DISORDER
     Route: 045
  2. FLONASE [Suspect]
     Indication: SINUS DISORDER
     Route: 045
  3. ESTROGEN + PROGESTERONE [Concomitant]

REACTIONS (4)
  - NASAL ABSCESS [None]
  - NASAL ULCER [None]
  - PAIN [None]
  - PHARMACEUTICAL PRODUCT COMPLAINT [None]
